FAERS Safety Report 20910158 (Version 1)
Quarter: 2022Q2

REPORT INFORMATION
  Report Type: Report from Study
  Country: DE (occurrence: DE)
  Receive Date: 20220603
  Receipt Date: 20220603
  Transmission Date: 20220721
  Serious: Yes (Hospitalization, Other)
  Sender: FDA-Public Use
  Company Number: DE-BRISTOL-MYERS SQUIBB COMPANY-BMS-2021-085653

PATIENT
  Age: 59 Year
  Sex: Male
  Weight: 106 kg

DRUGS (3)
  1. NIVOLUMAB [Suspect]
     Active Substance: NIVOLUMAB
     Indication: Renal cell carcinoma
     Dosage: 240 MILLIGRAM
     Route: 042
     Dates: start: 20210705, end: 20220105
  2. NIVOLUMAB [Suspect]
     Active Substance: NIVOLUMAB
     Route: 042
     Dates: start: 20210721, end: 20220511
  3. CABOZANTINIB S-MALATE [Suspect]
     Active Substance: CABOZANTINIB S-MALATE
     Indication: Renal cell carcinoma
     Dosage: 40 MILLIGRAM QD
     Route: 048
     Dates: start: 20210707

REACTIONS (9)
  - Diarrhoea [Recovering/Resolving]
  - Hypertension [Recovered/Resolved]
  - Weight decreased [Unknown]
  - Cholecystitis acute [Recovered/Resolved]
  - Immune-mediated thyroiditis [Unknown]
  - Muscle spasms [Recovered/Resolved]
  - Malaise [Recovered/Resolved]
  - Stomatitis [Recovered/Resolved]
  - Palmar-plantar erythrodysaesthesia syndrome [Recovered/Resolved]

NARRATIVE: CASE EVENT DATE: 20210731
